FAERS Safety Report 4772281-6 (Version None)
Quarter: 2005Q3

REPORT INFORMATION
  Report Type: 
  Country: None (occurrence: None)
  Receive Date: 20050919
  Receipt Date: 20050602
  Transmission Date: 20060218
  Serious: No
  Sender: FDA-Public Use
  Company Number: US-BRISTOL-MYERS SQUIBB COMPANY-12992541

PATIENT
  Age: 62 Year
  Sex: Male

DRUGS (2)
  1. DEFINITY [Suspect]
     Indication: POSTOPERATIVE CARE
     Route: 040
     Dates: start: 20050602, end: 20050602
  2. DEFINITY [Suspect]
     Indication: ANGINA PECTORIS
     Route: 040
     Dates: start: 20050602, end: 20050602

REACTIONS (2)
  - BACK PAIN [None]
  - RENAL PAIN [None]
